FAERS Safety Report 10372042 (Version 1)
Quarter: 2014Q3

REPORT INFORMATION
  Report Type: Spontaneous
  Country: BR (occurrence: BR)
  Receive Date: 20140808
  Receipt Date: 20140808
  Transmission Date: 20150326
  Serious: Yes (Hospitalization, Other)
  Sender: FDA-Public Use
  Company Number: BR-ABBVIE-14P-020-1269121-00

PATIENT
  Sex: Male
  Weight: 104 kg

DRUGS (8)
  1. GEODON [Concomitant]
     Active Substance: ZIPRASIDONE HYDROCHLORIDE\ZIPRASIDONE MESYLATE
     Indication: BIPOLAR DISORDER
     Dosage: DAILY DOSE: 160MG, AT LUNCH/AT NIGHT
     Route: 048
  2. RISPERIDONE. [Concomitant]
     Active Substance: RISPERIDONE
     Indication: HALLUCINATION, AUDITORY
     Dosage: DAILY DOSE:8 MG, 1 TABLET IN THE MORNING AND 3 TABLETS AT NIGHT
     Route: 048
  3. PAROXETINE [Concomitant]
     Active Substance: PAROXETINE\PAROXETINE HYDROCHLORIDE
     Indication: ANXIETY
  4. OMEPRAZOLE. [Concomitant]
     Active Substance: OMEPRAZOLE
     Indication: GASTRITIS
     Dosage: 20MG, PHYSICIAN ORIENTED PT TO TAKE 1 TAB AFTER FASTING, BUT PT DID NOT TAKES AS ORIENTED
     Route: 048
  5. DEPAKENE [Suspect]
     Active Substance: VALPROIC ACID
     Indication: BIPOLAR DISORDER
     Dosage: DAILY DOSE: 1500, 500MG IN THE MORNING/ 1000MG AT NIGHT
     Route: 048
  6. CIPROFIBRATE [Concomitant]
     Active Substance: CIPROFIBRATE
     Indication: BLOOD CHOLESTEROL
     Dosage: DAILY DOSE: 100MG, AT NIGHT
     Route: 048
  7. METFORMIN [Concomitant]
     Active Substance: METFORMIN HYDROCHLORIDE
     Indication: DIABETES MELLITUS
     Dosage: DAILY DOSE: 1700MG, AT LUNCH AND AT DINNER
     Route: 048
  8. PAROXETINE [Concomitant]
     Active Substance: PAROXETINE\PAROXETINE HYDROCHLORIDE
     Indication: DEPRESSION
     Dosage: DAILY DOSE: 40 MG, AT NIGHT

REACTIONS (5)
  - Blood glucose increased [Not Recovered/Not Resolved]
  - Unevaluable event [Unknown]
  - Investigation [Unknown]
  - Vision blurred [Not Recovered/Not Resolved]
  - Depressed mood [Not Recovered/Not Resolved]
